FAERS Safety Report 4627987-6 (Version None)
Quarter: 2005Q2

REPORT INFORMATION
  Report Type: 
  Country: None (occurrence: None)
  Receive Date: 20050405
  Receipt Date: 20050405
  Transmission Date: 20051028
  Serious: Yes (Other)
  Sender: FDA-Public Use
  Company Number: None

PATIENT
  Sex: Female
  Weight: 50 kg

DRUGS (2)
  1. OXYCODONE SR 80 MG [Suspect]
     Indication: MUSCLE SPASTICITY
     Dosage: ONE TABLET PO BID
     Route: 048
     Dates: start: 20050318
  2. OXYCODONE SR 80 MG [Suspect]
     Indication: OSTEOARTHRITIS
     Dosage: ONE TABLET PO BID
     Route: 048
     Dates: start: 20050318

REACTIONS (2)
  - INADEQUATE ANALGESIA [None]
  - PHARMACEUTICAL PRODUCT COMPLAINT [None]
